FAERS Safety Report 5402133-X (Version None)
Quarter: 2007Q3

REPORT INFORMATION
  Report Type: 
  Country: None (occurrence: None)
  Receive Date: 20070801
  Receipt Date: 20070727
  Transmission Date: 20080115
  Serious: Yes (Other)
  Sender: FDA-Public Use
  Company Number: US-RB-007557-07

PATIENT
  Sex: Female

DRUGS (5)
  1. SUBOXONE [Suspect]
     Dosage: DOSAGE UNKNOWN
     Route: 065
  2. ALCOHOL [Suspect]
     Indication: DRUG USE FOR UNKNOWN INDICATION
     Dosage: AMOUNT OF ALCOHOL CONSUMED UNKNOWN
     Route: 048
  3. BENZOS [Suspect]
     Indication: DRUG USE FOR UNKNOWN INDICATION
     Dosage: DOSAGE AND TYPE OF BENZODIAZEPINES USED UNKNOWN.
     Route: 065
  4. MARIJUANA [Suspect]
     Indication: DRUG USE FOR UNKNOWN INDICATION
     Dosage: AMOUNT AND LAST USE UNKNOWN
     Route: 065
  5. COCAINE [Suspect]
     Indication: DRUG USE FOR UNKNOWN INDICATION
     Dosage: AMOUNT AND LAST USE UNKNOWN
     Route: 065

REACTIONS (1)
  - CONVULSION [None]
